FAERS Safety Report 22136759 (Version 1)
Quarter: 2023Q1

REPORT INFORMATION
  Report Type: Spontaneous
  Country: FR (occurrence: FR)
  Receive Date: 20230324
  Receipt Date: 20230324
  Transmission Date: 20230417
  Serious: Yes (Other)
  Sender: FDA-Public Use
  Company Number: None

PATIENT
  Age: 34 Year
  Sex: Female

DRUGS (20)
  1. KEYTRUDA [Suspect]
     Active Substance: PEMBROLIZUMAB
     Indication: Triple negative breast cancer
     Route: 042
     Dates: start: 20221226, end: 20221226
  2. KEYTRUDA [Suspect]
     Active Substance: PEMBROLIZUMAB
     Dosage: 200 MILLIGRAM, ONCE
     Route: 042
     Dates: start: 20230116, end: 20230116
  3. KEYTRUDA [Suspect]
     Active Substance: PEMBROLIZUMAB
     Dosage: 200 MILLIGRAM, ONCE
     Route: 042
     Dates: start: 20230207, end: 20230207
  4. KEYTRUDA [Suspect]
     Active Substance: PEMBROLIZUMAB
     Dosage: 200 MILLIGRAM, ONCE
     Route: 042
     Dates: start: 20230307, end: 20230307
  5. PACLITAXEL [Suspect]
     Active Substance: PACLITAXEL
     Indication: Triple negative breast cancer
     Route: 042
     Dates: start: 20230102, end: 20230102
  6. PACLITAXEL [Suspect]
     Active Substance: PACLITAXEL
     Dosage: 141 MILLIGRAM, ONCE
     Route: 042
     Dates: start: 20230116, end: 20230116
  7. PACLITAXEL [Suspect]
     Active Substance: PACLITAXEL
     Dosage: 142.5 MILLIGRAM, ONCE
     Route: 042
     Dates: start: 20230130, end: 20230130
  8. PACLITAXEL [Suspect]
     Active Substance: PACLITAXEL
     Dosage: 142.5 MILLIGRAM, ONCE
     Route: 042
     Dates: start: 20230207, end: 20230207
  9. PACLITAXEL [Suspect]
     Active Substance: PACLITAXEL
     Dosage: 141 MILLIGRAM, ONCE
     Route: 042
     Dates: start: 20230123, end: 20230123
  10. PACLITAXEL [Suspect]
     Active Substance: PACLITAXEL
     Dosage: 140 MILLIGRAM, ONCE
     Route: 042
     Dates: start: 20221226, end: 20221226
  11. PACLITAXEL [Suspect]
     Active Substance: PACLITAXEL
     Dosage: 141 MILLIGRAM, ONCE
     Route: 042
     Dates: start: 20230109, end: 20230109
  12. PACLITAXEL [Suspect]
     Active Substance: PACLITAXEL
     Dosage: 142.5 MILLIGRAM, ONCE
     Route: 042
     Dates: start: 20230215, end: 20230215
  13. CARBOPLATIN [Suspect]
     Active Substance: CARBOPLATIN
     Indication: Triple negative breast cancer
     Dosage: 225 MILLIGRAM, ONCE
     Route: 042
     Dates: start: 20230207, end: 20230207
  14. CARBOPLATIN [Suspect]
     Active Substance: CARBOPLATIN
     Dosage: 225 MILLIGRAM, ONCE
     Route: 042
     Dates: start: 20230130, end: 20230130
  15. CARBOPLATIN [Suspect]
     Active Substance: CARBOPLATIN
     Dosage: 225 MILLIGRAM, ONCE
     Route: 042
     Dates: start: 20230123, end: 20230123
  16. CARBOPLATIN [Suspect]
     Active Substance: CARBOPLATIN
     Dosage: 225 MILLIGRAM, ONCE
     Route: 042
     Dates: start: 20230116, end: 20230116
  17. CARBOPLATIN [Suspect]
     Active Substance: CARBOPLATIN
     Dosage: 222 MILLIGRAM, ONCE
     Route: 042
     Dates: start: 20221226, end: 20221226
  18. CARBOPLATIN [Suspect]
     Active Substance: CARBOPLATIN
     Dosage: 225 MILLIGRAM, ONCE
     Route: 042
     Dates: start: 20230102, end: 20230102
  19. CARBOPLATIN [Suspect]
     Active Substance: CARBOPLATIN
     Dosage: 225 MILLIGRAM, ONCE
     Route: 042
     Dates: start: 20230215, end: 20230215
  20. CARBOPLATIN [Suspect]
     Active Substance: CARBOPLATIN
     Dosage: 225 MILLIGRAM, ONCE
     Route: 042
     Dates: start: 20230109, end: 20230109

REACTIONS (1)
  - Neuropathy peripheral [Not Recovered/Not Resolved]

NARRATIVE: CASE EVENT DATE: 20221229
